FAERS Safety Report 20539425 (Version 1)
Quarter: 2022Q1

REPORT INFORMATION
  Report Type: Spontaneous
  Country: CA (occurrence: CA)
  Receive Date: 20220302
  Receipt Date: 20220302
  Transmission Date: 20220423
  Serious: Yes (Other)
  Sender: FDA-Public Use
  Company Number: CA-JNJFOC-20211044505

PATIENT
  Age: 64 Year
  Sex: Female
  Weight: 84 kg

DRUGS (5)
  1. INFLIXIMAB [Suspect]
     Active Substance: INFLIXIMAB
     Indication: Crohn^s disease
     Route: 042
  2. EPIPEN [Concomitant]
     Active Substance: EPINEPHRINE
     Dosage: 0.3MG/0.3ML AUTO-INJECTOR
  3. PENTASA [Concomitant]
     Active Substance: MESALAMINE
  4. PREDNISONE [Concomitant]
     Active Substance: PREDNISONE
  5. QUESTRAN [Concomitant]
     Active Substance: CHOLESTYRAMINE

REACTIONS (3)
  - Animal scratch [Unknown]
  - Wound infection [Unknown]
  - Off label use [Unknown]
